FAERS Safety Report 5523614-4 (Version None)
Quarter: 2007Q4

REPORT INFORMATION
  Report Type: 
  Country: None (occurrence: None)
  Receive Date: 20071121
  Receipt Date: 20071109
  Transmission Date: 20080405
  Serious: Yes (Hospitalization)
  Sender: FDA-Public Use
  Company Number: GB-ASTRAZENECA-2007GB02281

PATIENT
  Age: 16 Year
  Sex: Female
  Weight: 38 kg

DRUGS (3)
  1. LOSEC [Suspect]
     Indication: GASTROOESOPHAGEAL REFLUX DISEASE
     Route: 065
     Dates: start: 20060101, end: 20070601
  2. DOMPERIDONE [Concomitant]
     Indication: REFLUX GASTRITIS
  3. MOVICOL [Concomitant]

REACTIONS (6)
  - CHEST PAIN [None]
  - DYSTONIA [None]
  - GASTROOESOPHAGEAL REFLUX DISEASE [None]
  - HEADACHE [None]
  - RESTLESSNESS [None]
  - SPEECH DISORDER [None]
